FAERS Safety Report 11201335 (Version 1)
Quarter: 2015Q2

REPORT INFORMATION
  Report Type: Spontaneous
  Country: US (occurrence: None)
  Receive Date: 20150617
  Receipt Date: 20150617
  Transmission Date: 20150821
  Serious: Yes (Hospitalization)
  Sender: FDA-Public Use
  Company Number: None

PATIENT
  Age: 24 Year
  Sex: Female
  Weight: 93.4 kg

DRUGS (2)
  1. NPLATE [Suspect]
     Active Substance: ROMIPLOSTIM
     Route: 058
     Dates: start: 20150408, end: 20150408
  2. NPLATE [Suspect]
     Active Substance: ROMIPLOSTIM
     Indication: PREOPERATIVE CARE
     Route: 058
     Dates: start: 20150408, end: 20150408

REACTIONS (3)
  - Thrombocytosis [None]
  - Deep vein thrombosis postoperative [None]
  - Portal vein thrombosis [None]

NARRATIVE: CASE EVENT DATE: 20150413
